FAERS Safety Report 9767548 (Version 2)
Quarter: 2016Q2

REPORT INFORMATION
  Report Type: Report from Study
  Country: US (occurrence: US)
  Receive Date: 20131217
  Receipt Date: 20160518
  Transmission Date: 20160815
  Serious: Yes (Other)
  Sender: FDA-Public Use
  Company Number: US-ROCHE-1318721

PATIENT
  Sex: Female

DRUGS (29)
  1. ZOFRAN [Concomitant]
     Active Substance: ONDANSETRON HYDROCHLORIDE
     Dosage: 4MG/5ML SOLUTION;  1-2 Q4-6 HR AS NEEDED
     Route: 065
  2. RESTASIS [Concomitant]
     Active Substance: CYCLOSPORINE
     Dosage: EMULSION TWICE DAILY
     Route: 065
  3. LAMICTAL [Concomitant]
     Active Substance: LAMOTRIGINE
     Dosage: BEDTIME
     Route: 048
  4. ADDERALL XR [Concomitant]
     Active Substance: AMPHETAMINE ASPARTATE\AMPHETAMINE SULFATE\DEXTROAMPHETAMINE SACCHARATE\DEXTROAMPHETAMINE SULFATE
     Dosage: DAILY
     Route: 048
  5. DULERA [Concomitant]
     Active Substance: FORMOTEROL FUMARATE DIHYDRATE\MOMETASONE FUROATE
     Dosage: 200-5MCG PER ACT 2 TIMES DAILY
     Route: 055
  6. PROCARDIA XL [Concomitant]
     Active Substance: NIFEDIPINE
     Dosage: Q AM
     Route: 048
  7. XOLAIR [Suspect]
     Active Substance: OMALIZUMAB
     Indication: ASTHMA
     Route: 065
     Dates: start: 20110607
  8. NAPROSYN [Suspect]
     Active Substance: NAPROXEN
     Indication: PRODUCT USED FOR UNKNOWN INDICATION
     Dosage: 2 TIMES DAILY
     Route: 048
     Dates: start: 20130410
  9. ALBUTEROL SULFATE. [Concomitant]
     Active Substance: ALBUTEROL SULFATE
     Dosage: PER3ML 0.083%NEB SOL 4TIMES DAILY PRN
     Route: 065
  10. EFFEXOR XR [Concomitant]
     Active Substance: VENLAFAXINE HYDROCHLORIDE
     Dosage: 1 EVERY MORNING
     Route: 048
  11. PEPCID [Concomitant]
     Active Substance: FAMOTIDINE
     Dosage: 1 TWICE DAILY
     Route: 048
  12. CODEINE SULFATE. [Concomitant]
     Active Substance: CODEINE SULFATE
     Dosage: 2 TABLETS Q8H AS NEEDED
     Route: 048
  13. PROLIA [Concomitant]
     Active Substance: DENOSUMAB
     Dosage: 60MG/ML SOLUTION Q 6 MONTHS
     Route: 058
  14. LAMICTAL [Concomitant]
     Active Substance: LAMOTRIGINE
     Dosage: EVERY MORNING
     Route: 048
  15. XOLAIR [Suspect]
     Active Substance: OMALIZUMAB
     Dosage: MONTHLY
     Route: 065
     Dates: start: 20131203, end: 20131203
  16. WELLBUTRIN XL [Concomitant]
     Active Substance: BUPROPION HYDROCHLORIDE
     Dosage: 1 EVERY MORNING
     Route: 065
  17. SINGULAIR [Concomitant]
     Active Substance: MONTELUKAST SODIUM
     Dosage: DAILY
     Route: 048
  18. EFFEXOR XR [Concomitant]
     Active Substance: VENLAFAXINE HYDROCHLORIDE
     Dosage: 1 EVERY MORNING
     Route: 048
  19. SOLU-MEDROL [Concomitant]
     Active Substance: METHYLPREDNISOLONE SODIUM SUCCINATE
     Dosage: BEFORE AND AFTER LIPID INFUSION
     Route: 065
  20. ATIVAN [Concomitant]
     Active Substance: LORAZEPAM
     Dosage: 1/2TAB- 1TAB  THREE TIMES DAILY
     Route: 065
  21. LOVENOX [Concomitant]
     Active Substance: ENOXAPARIN SODIUM
     Dosage: PER 0.8 ML SOLUTIONS DAILY
     Route: 058
  22. BENADRYL [Concomitant]
     Active Substance: DIPHENHYDRAMINE HYDROCHLORIDE
     Dosage: 4 TIMES DAILY
     Route: 065
  23. TUDORZA PRESSAIR [Concomitant]
     Active Substance: ACLIDINIUM BROMIDE
     Dosage: PER ACT 2 TIMES DAILY
     Route: 055
  24. PROTONIX [Concomitant]
     Active Substance: PANTOPRAZOLE SODIUM
     Dosage: 40 MG PER SOLUTION AT BEDTIME
     Route: 042
  25. NASONEX [Concomitant]
     Active Substance: MOMETASONE FUROATE
     Dosage: PER ACT NASAL AS DIRECTED
     Route: 065
  26. PHENERGAN [Concomitant]
     Active Substance: PROMETHAZINE HYDROCHLORIDE
     Dosage: PER/ML SOLUTIONS 4 TIMES DAILY
     Route: 065
  27. NAPROSYN [Suspect]
     Active Substance: NAPROXEN
     Route: 048
     Dates: start: 20131203
  28. VITAMIN B12 [Concomitant]
     Active Substance: CYANOCOBALAMIN
     Dosage: PER 15 ML LIQUID; ONCE A MONTH
     Route: 048
  29. LUPRON DEPOT [Concomitant]
     Active Substance: LEUPROLIDE ACETATE
     Dosage: (PED) Q 3 MONTHS
     Route: 030

REACTIONS (8)
  - Rib fracture [Unknown]
  - Deep vein thrombosis [Unknown]
  - Osteoporosis [Unknown]
  - Bone contusion [Unknown]
  - Asthma [Unknown]
  - Cough [Unknown]
  - Musculoskeletal chest pain [Unknown]
  - Bronchitis [Unknown]
